FAERS Safety Report 16371344 (Version 1)
Quarter: 2019Q3

REPORT INFORMATION
  Report Type: Spontaneous
  Country: US (occurrence: US)
  Receive Date: 20190529
  Receipt Date: 20190529
  Transmission Date: 20191004
  Serious: Yes (Life-Threatening)
  Sender: FDA-Public Use
  Company Number: None

PATIENT
  Age: 77 Year
  Sex: Female
  Weight: 81.8 kg

DRUGS (16)
  1. CELECOXIB. [Concomitant]
     Active Substance: CELECOXIB
  2. SODIUM CHLORIDE 0.9% INFUSION [Concomitant]
  3. DEFINITY [Suspect]
     Active Substance: PERFLUTREN
     Indication: ECHOCARDIOGRAM
     Dates: start: 20181128, end: 20181128
  4. ALPRAZOLAM. [Concomitant]
     Active Substance: ALPRAZOLAM
  5. DOCUSATE SODIUM. [Concomitant]
     Active Substance: DOCUSATE SODIUM
  6. FUROSEMIDE. [Concomitant]
     Active Substance: FUROSEMIDE
  7. MULTIVITAMINE WITH MINERALS (THERAGRAN-M) [Concomitant]
  8. SIMVASTATIN. [Concomitant]
     Active Substance: SIMVASTATIN
  9. VITAMIN E [Concomitant]
     Active Substance: .ALPHA.-TOCOPHEROL
  10. FLECAINIDE [Concomitant]
     Active Substance: FLECAINIDE
  11. BISOPROLOL [Concomitant]
     Active Substance: BISOPROLOL
  12. HYDRALAZINE [Concomitant]
     Active Substance: HYDRALAZINE HYDROCHLORIDE
  13. APIXABAN [Concomitant]
     Active Substance: APIXABAN
  14. FEXOFENADINE [Concomitant]
     Active Substance: FEXOFENADINE HYDROCHLORIDE
  15. LEVOTHYROXINE. [Concomitant]
     Active Substance: LEVOTHYROXINE
  16. POTASIUM CHLORIDE [Concomitant]

REACTIONS (8)
  - Unresponsive to stimuli [None]
  - Rib fracture [None]
  - Iatrogenic injury [None]
  - Anaphylactic reaction [None]
  - Bradycardia [None]
  - Rash [None]
  - Cardiac arrest [None]
  - Apnoea [None]

NARRATIVE: CASE EVENT DATE: 20181128
